FAERS Safety Report 7962081-8 (Version None)
Quarter: 2011Q4

REPORT INFORMATION
  Report Type: 
  Country: None (occurrence: None)
  Receive Date: 20111207
  Receipt Date: 20111130
  Transmission Date: 20120403
  Serious: No
  Sender: FDA-Public Use
  Company Number: KR-UCBSA-046862

PATIENT
  Age: 30 Year
  Sex: Female

DRUGS (20)
  1. ORNITHINE ASPARTATE [Suspect]
     Indication: PROPHYLAXIS
     Route: 042
     Dates: start: 20110320
  2. DIOMAGNATE [Concomitant]
     Route: 048
  3. IV-GLOBULIN [Concomitant]
     Route: 042
  4. FUROSEMIDE [Concomitant]
     Route: 042
  5. NOREPINEPHRINE BITARTRATE [Concomitant]
     Route: 042
  6. CEFTRIAXONE [Concomitant]
     Indication: INFECTION PROPHYLAXIS
     Route: 042
     Dates: start: 20110320
  7. POAPACETAMOL [Concomitant]
     Route: 042
  8. KELORA [Concomitant]
     Route: 042
  9. LEVETIRACETAM [Suspect]
     Indication: CONVULSION
     Route: 042
     Dates: start: 20110320, end: 20110322
  10. CLINDAMYCIN [Concomitant]
     Indication: INFECTION PROPHYLAXIS
     Route: 042
     Dates: start: 20110320
  11. NADOLOL [Concomitant]
     Indication: PYREXIA
     Route: 042
     Dates: start: 20110320
  12. CEREBYX [Concomitant]
     Route: 042
  13. RANITIDINE [Concomitant]
     Indication: PROPHYLAXIS AGAINST GASTROINTESTINAL ULCER
     Route: 042
     Dates: start: 20110320
  14. MESNA [Concomitant]
     Dosage: UNKNOWN DOSAGE
     Route: 042
  15. NALOXONE [Suspect]
     Indication: DYSPNOEA
     Route: 042
     Dates: start: 20110320
  16. METHYLPREDNISOLONE [Suspect]
     Indication: BRONCHIAL OEDEMA
     Route: 042
     Dates: start: 20110320
  17. ACETAMINOPHEN [Concomitant]
     Route: 048
  18. DOPAMINE HCL [Concomitant]
     Route: 042
  19. URDEOXYCHOLIC ACID [Concomitant]
     Route: 048
  20. GALIC OIL ETC [Concomitant]
     Route: 048

REACTIONS (1)
  - LYMPHOCYTE COUNT DECREASED [None]
